FAERS Safety Report 9987344 (Version 2)
Quarter: 2014Q1

REPORT INFORMATION
  Report Type: Spontaneous
  Country: DK (occurrence: DK)
  Receive Date: 20140307
  Receipt Date: 20140307
  Transmission Date: 20141002
  Serious: Yes (Life-Threatening, Hospitalization, Disabling)
  Sender: FDA-Public Use
  Company Number: DK-ABBVIE-13P-044-1077432-00

PATIENT
  Age: 56 Year
  Sex: Female
  Weight: 62 kg

DRUGS (3)
  1. HUMIRA [Suspect]
     Indication: RHEUMATOID ARTHRITIS
     Dates: start: 20101203, end: 20121101
  2. ARAVA [Suspect]
     Indication: RHEUMATOID ARTHRITIS
     Dates: start: 20101203, end: 201207
  3. DICILLIN [Suspect]

REACTIONS (10)
  - Hepatomegaly [Unknown]
  - Ascites [Unknown]
  - Cardiac failure acute [Unknown]
  - Localised infection [Unknown]
  - Dyspnoea [Unknown]
  - Deep vein thrombosis [Unknown]
  - Pulmonary embolism [Unknown]
  - Tendonitis [Unknown]
  - Oedema peripheral [Unknown]
  - Ovarian cancer [Unknown]
